FAERS Safety Report 12764466 (Version 2)
Quarter: 2016Q4

REPORT INFORMATION
  Report Type: Spontaneous
  Country: US (occurrence: US)
  Receive Date: 20160920
  Receipt Date: 20161010
  Transmission Date: 20170207
  Serious: Yes (Other)
  Sender: FDA-Public Use
  Company Number: US-TEVA-694042USA

PATIENT
  Age: 83 Year
  Sex: Female
  Weight: 59.02 kg

DRUGS (2)
  1. ENALAPRIL [Suspect]
     Active Substance: ENALAPRIL
     Indication: HYPERTENSION
     Dosage: 40 MILLIGRAM DAILY;
  2. CLONIDINE. [Suspect]
     Active Substance: CLONIDINE
     Indication: HYPERTENSION
     Route: 062
     Dates: start: 199601

REACTIONS (6)
  - Product physical issue [Unknown]
  - Hypertension [Recovered/Resolved]
  - Hip surgery [Unknown]
  - Fall [Unknown]
  - Ulcer [Unknown]
  - Drug ineffective [Unknown]

NARRATIVE: CASE EVENT DATE: 201510
